FAERS Safety Report 9522051 (Version 1)
Quarter: 2013Q1

REPORT INFORMATION
  Report Type: Spontaneous
  Country: US (occurrence: None)
  Receive Date: 20130305
  Receipt Date: 20130305
  Transmission Date: 20140127
  Serious: Yes (Other)
  Sender: FDA-Public Use
  Company Number: 163-21880-12081528

PATIENT
  Age: 65 Year
  Sex: Male

DRUGS (2)
  1. REVLIMID (LENAALIDOMIDE) (10 MILLIGRAM, CAPSULES) [Suspect]
     Indication: PLASMA CELL MYELOMA
     Dosage: 10 MG, 21 IN 28 D, PO
     Route: 048
     Dates: start: 20090521
  2. FORTEO (TERIPARATIDE) (INJECTION) [Concomitant]

REACTIONS (2)
  - Tinea pedis [None]
  - Bone pain [None]
